FAERS Safety Report 18077942 (Version 1)
Quarter: 2020Q3

REPORT INFORMATION
  Report Type: Spontaneous
  Country: DE (occurrence: DE)
  Receive Date: 20200727
  Receipt Date: 20200727
  Transmission Date: 20201103
  Serious: Yes (Other)
  Sender: FDA-Public Use
  Company Number: NVSC2020DE208256

PATIENT
  Sex: Male
  Weight: 117 kg

DRUGS (1)
  1. ENTRESTO [Suspect]
     Active Substance: SACUBITRIL\VALSARTAN
     Indication: PRODUCT USED FOR UNKNOWN INDICATION
     Dosage: 200 MG (97 MG SACUBITRIL/ 101 MG VALSARTAN)
     Route: 065
     Dates: start: 2020

REACTIONS (7)
  - Cardiac hypertrophy [Unknown]
  - Cardiomyopathy [Unknown]
  - Performance status decreased [Unknown]
  - Lymphocyte count increased [Unknown]
  - Vascular endothelial growth factor overexpression [Unknown]
  - Myocardial fibrosis [Unknown]
  - Ejection fraction decreased [Unknown]
